FAERS Safety Report 4607340-1 (Version None)
Quarter: 2005Q1

REPORT INFORMATION
  Report Type: 
  Country: None (occurrence: None)
  Receive Date: 20050311
  Receipt Date: 20050311
  Transmission Date: 20050727
  Serious: Yes (Other)
  Sender: FDA-Public Use
  Company Number: None

PATIENT
  Age: 57 Year
  Sex: Male
  Weight: 81.6475 kg

DRUGS (4)
  1. LIPITOR [Suspect]
     Indication: HYPERLIPIDAEMIA
     Dosage: 10 MG QD
  2. AVANDIA [Concomitant]
  3. UNIVASC [Concomitant]
  4. DIPROLENE [Concomitant]

REACTIONS (1)
  - ERECTILE DYSFUNCTION [None]
